FAERS Safety Report 23875935 (Version 2)
Quarter: 2024Q2

REPORT INFORMATION
  Report Type: Spontaneous
  Country: US (occurrence: US)
  Receive Date: 20240520
  Receipt Date: 20240527
  Transmission Date: 20240716
  Serious: No
  Sender: FDA-Public Use
  Company Number: US-SANOFI-02047730

PATIENT
  Sex: Male

DRUGS (2)
  1. MULTAQ [Suspect]
     Active Substance: DRONEDARONE
     Indication: Atrial fibrillation
     Dosage: 400 MG, BID
  2. MULTAQ [Suspect]
     Active Substance: DRONEDARONE
     Dosage: 800 MG BID

REACTIONS (2)
  - Off label use [Unknown]
  - Incorrect dose administered [Unknown]
